FAERS Safety Report 4340945-4 (Version None)
Quarter: 2004Q2

REPORT INFORMATION
  Report Type: 
  Country: None (occurrence: None)
  Receive Date: 20040413
  Receipt Date: 20040331
  Transmission Date: 20050107
  Serious: Yes (Hospitalization)
  Sender: FDA-Public Use
  Company Number: UK071060

PATIENT
  Age: 49 Year
  Sex: Female

DRUGS (6)
  1. KINERET [Suspect]
     Indication: RHEUMATOID ARTHRITIS
     Dosage: 100 MG, 1 IN 1 DAYS, SC
     Route: 058
     Dates: start: 20020501, end: 20031001
  2. METHYLPREDNISOLONE [Concomitant]
  3. INDOMETHACIN [Concomitant]
  4. CALCIUM FOLINATE [Concomitant]
  5. PANTOPRAZOLE [Concomitant]
  6. METHOTREXATE [Suspect]
     Dosage: 5 MG, 1 IN 1 WEEKS, IM
     Route: 030
     Dates: start: 20030501

REACTIONS (2)
  - BASAL CELL CARCINOMA [None]
  - DRUG INEFFECTIVE [None]
